FAERS Safety Report 5348623-X (Version None)
Quarter: 2007Q2

REPORT INFORMATION
  Report Type: 
  Country: None (occurrence: None)
  Receive Date: 20070508
  Receipt Date: 20061205
  Transmission Date: 20071010
  Serious: Yes (Hospitalization)
  Sender: FDA-Public Use
  Company Number: 237966K06USA

PATIENT
  Age: 51 Year
  Sex: Female

DRUGS (9)
  1. REBIF [Suspect]
     Indication: MULTIPLE SCLEROSIS
     Dosage: 44 MCG, ONCE, SUBCUTANEOUS; 22 MCG, 3 IN 1 WEEKS, SUBCUTANEOUS
     Route: 058
     Dates: start: 20061023, end: 20061120
  2. REBIF [Suspect]
     Indication: MULTIPLE SCLEROSIS
     Dosage: 44 MCG, ONCE, SUBCUTANEOUS; 22 MCG, 3 IN 1 WEEKS, SUBCUTANEOUS
     Route: 058
     Dates: start: 20061121, end: 20061121
  3. CELEXA [Concomitant]
  4. ESTRADIOL/PROVERA (TREVINA) [Concomitant]
  5. PROPANOLOL (PROPRANOLOL/00030001/) [Concomitant]
  6. BACLOFEN [Concomitant]
  7. CLONOPIN [Concomitant]
  8. LYRICA [Concomitant]
  9. ULTRAM [Concomitant]

REACTIONS (13)
  - ABASIA [None]
  - ANXIETY [None]
  - ASTHENIA [None]
  - DELIRIUM [None]
  - DIPLOPIA [None]
  - FATIGUE [None]
  - FEELING HOT [None]
  - LETHARGY [None]
  - MALAISE [None]
  - MULTIPLE SCLEROSIS RELAPSE [None]
  - MUSCLE SPASMS [None]
  - MUSCULOSKELETAL STIFFNESS [None]
  - MYALGIA [None]
